FAERS Safety Report 8486125-2 (Version None)
Quarter: 2012Q3

REPORT INFORMATION
  Report Type: 
  Country: None (occurrence: None)
  Receive Date: 20120703
  Receipt Date: 20120624
  Transmission Date: 20120928
  Serious: Yes (Hospitalization)
  Sender: FDA-Public Use
  Company Number: JP-BAXTER-2012BAX009484

PATIENT
  Sex: Male
  Weight: 98 kg

DRUGS (4)
  1. DIANEAL [Suspect]
  2. DIANEAL [Suspect]
     Indication: DIABETIC NEPHROPATHY
     Route: 033
     Dates: start: 20120427
  3. DIANEAL 137 W/ DEXTROSE 2.5% IN PLASTIC CONTAINER [Suspect]
     Indication: DIABETIC NEPHROPATHY
     Route: 033
     Dates: start: 20120427
  4. EXTRANEAL [Suspect]
     Indication: DIABETIC NEPHROPATHY
     Route: 033
     Dates: start: 20120427

REACTIONS (2)
  - WEIGHT INCREASED [None]
  - FLUID RETENTION [None]
